FAERS Safety Report 23781622 (Version 1)
Quarter: 2024Q2

REPORT INFORMATION
  Report Type: Spontaneous
  Country: US (occurrence: US)
  Receive Date: 20240425
  Receipt Date: 20240425
  Transmission Date: 20240716
  Serious: No
  Sender: FDA-Public Use
  Company Number: US-HALEON-2169243

PATIENT
  Age: 40 Year
  Sex: Female

DRUGS (1)
  1. SENSODYNE PRONAMEL DAILY PROTECTION [Suspect]
     Active Substance: POTASSIUM NITRATE\SODIUM FLUORIDE
     Dosage: EXPDATE:20250331
     Dates: start: 20240125, end: 20240201

REACTIONS (1)
  - Hyperaesthesia teeth [Recovered/Resolved]

NARRATIVE: CASE EVENT DATE: 20240127
